FAERS Safety Report 7222634-1 (Version None)
Quarter: 2011Q1

REPORT INFORMATION
  Report Type: 
  Country: None (occurrence: None)
  Receive Date: 20110103
  Receipt Date: 20101222
  Transmission Date: 20110831
  Serious: Yes (Hospitalization)
  Sender: FDA-Public Use
  Company Number: 2010MA005521

PATIENT
  Age: 71 Year
  Sex: Male

DRUGS (3)
  1. AKINETON [Suspect]
     Indication: PRODUCT USED FOR UNKNOWN INDICATION
     Dosage: 5 MG, IV
     Route: 042
     Dates: start: 20100412, end: 20100412
  2. HALDOL [Suspect]
     Indication: PRODUCT USED FOR UNKNOWN INDICATION
     Dosage: 10 MG QD, PO
     Route: 048
     Dates: start: 20100330
  3. DIAZEPAM [Suspect]
     Indication: PRODUCT USED FOR UNKNOWN INDICATION
     Dosage: 10 MG QD, PO
     Route: 048
     Dates: start: 20100320, end: 20100408

REACTIONS (1)
  - DEPRESSED LEVEL OF CONSCIOUSNESS [None]
